FAERS Safety Report 18161561 (Version 1)
Quarter: 2020Q3

REPORT INFORMATION
  Report Type: Spontaneous
  Country: DE (occurrence: DE)
  Receive Date: 20200818
  Receipt Date: 20200818
  Transmission Date: 20201103
  Serious: Yes (Hospitalization)
  Sender: FDA-Public Use
  Company Number: NVSC2020DE222501

PATIENT
  Age: 70 Year
  Sex: Female
  Weight: 70 kg

DRUGS (5)
  1. QUETIAPINE. [Suspect]
     Active Substance: QUETIAPINE
     Indication: PRODUCT USED FOR UNKNOWN INDICATION
     Dosage: 25 MG QD (0?0?0?1)
     Route: 065
  2. EUTHYROX [Concomitant]
     Active Substance: LEVOTHYROXINE SODIUM
     Indication: PRODUCT USED FOR UNKNOWN INDICATION
     Dosage: 200 UG, QD (1?0?0?0)
     Route: 065
  3. METAMIZOLE [Concomitant]
     Active Substance: METAMIZOLE
     Indication: PRODUCT USED FOR UNKNOWN INDICATION
     Dosage: 500 MG, PRN (BEDARF)
     Route: 065
  4. CINNARIZIN DIMENHYDRINAT [Concomitant]
     Indication: PRODUCT USED FOR UNKNOWN INDICATION
     Dosage: 20|40 MG, BEDARF
     Route: 065
  5. BISOPROLOL [Concomitant]
     Active Substance: BISOPROLOL
     Indication: PRODUCT USED FOR UNKNOWN INDICATION
     Dosage: 10 MG, QD (1?0?0?0)
     Route: 065

REACTIONS (4)
  - Dizziness [Unknown]
  - Syncope [Unknown]
  - Tongue biting [Unknown]
  - Urinary incontinence [Unknown]
